FAERS Safety Report 14233803 (Version 1)
Quarter: 2017Q4

REPORT INFORMATION
  Report Type: Spontaneous
  Country: US (occurrence: US)
  Receive Date: 20171129
  Receipt Date: 20171129
  Transmission Date: 20180321
  Serious: Yes (Hospitalization)
  Sender: FDA-Public Use
  Company Number: US-PFIZER INC-2017508126

PATIENT
  Age: 51 Year
  Sex: Female
  Weight: 122.4 kg

DRUGS (2)
  1. HYDROCHLOROTHIAZIDE. [Concomitant]
     Active Substance: HYDROCHLOROTHIAZIDE
     Indication: BLOOD PRESSURE ABNORMAL
     Dosage: 25 MG, DAILY
  2. PREMPRO [Suspect]
     Active Substance: ESTROGENS, CONJUGATED\MEDROXYPROGESTERONE ACETATE
     Indication: OESTROGEN THERAPY
     Dosage: UNK (ESTROGENS CONJUGATED: 0.625 MG/MEDROXYPROGESTERONE ACETATE: 2.5 MG)
     Route: 048

REACTIONS (4)
  - Ovarian cyst [Recovered/Resolved]
  - Dyspepsia [Unknown]
  - Loss of personal independence in daily activities [Unknown]
  - Emotional distress [Unknown]

NARRATIVE: CASE EVENT DATE: 201608
